FAERS Safety Report 20189441 (Version 1)
Quarter: 2021Q4

REPORT INFORMATION
  Report Type: Report from Study
  Country: US (occurrence: US)
  Receive Date: 20211215
  Receipt Date: 20211215
  Transmission Date: 20220303
  Serious: Yes (Hospitalization)
  Sender: FDA-Public Use
  Company Number: US-GLAXOSMITHKLINE-US2021GSK248792

PATIENT
  Age: 68 Year
  Sex: Female
  Weight: 77.551 kg

DRUGS (14)
  1. DOSTARLIMAB [Suspect]
     Active Substance: DOSTARLIMAB
     Indication: Breast cancer
     Dosage: 500 MG, Z-Q3W
     Route: 042
     Dates: start: 20210702, end: 20210702
  2. DOSTARLIMAB [Suspect]
     Active Substance: DOSTARLIMAB
     Dosage: 500 MG, Z-Q3W
     Route: 042
     Dates: start: 20210831, end: 20210831
  3. PACLITAXEL [Suspect]
     Active Substance: PACLITAXEL
     Indication: Breast cancer
     Dosage: 15MG/390MG, Z-3 DAYS QW
     Route: 048
     Dates: start: 20210702, end: 20210702
  4. PACLITAXEL [Suspect]
     Active Substance: PACLITAXEL
     Dosage: 15MG/390MG, Z-3 DAYS QW
     Route: 048
     Dates: start: 20210918, end: 20210918
  5. DOXORUBICIN [Suspect]
     Active Substance: DOXORUBICIN
     Indication: Breast cancer
     Dosage: 110 MG, Z-Q2W
     Route: 042
     Dates: start: 20211007, end: 20211007
  6. DOXORUBICIN [Suspect]
     Active Substance: DOXORUBICIN
     Dosage: 110 MG, Z- Q2W
     Route: 042
     Dates: start: 20211116, end: 20211116
  7. CYCLOPHOSPHAMIDE [Suspect]
     Active Substance: CYCLOPHOSPHAMIDE
     Indication: Breast cancer
     Dosage: 100 MG, Z-Q2W
     Route: 042
     Dates: start: 20211007, end: 20211007
  8. CYCLOPHOSPHAMIDE [Suspect]
     Active Substance: CYCLOPHOSPHAMIDE
     Dosage: 100 MG, Z-Q2W
     Route: 042
     Dates: start: 20211116, end: 20211116
  9. COMPAZINE [Concomitant]
     Active Substance: PROCHLORPERAZINE MALEATE
     Indication: Nausea
     Dosage: 5 MG
     Route: 048
     Dates: start: 20211126
  10. DEXAMETHASONE [Concomitant]
     Active Substance: DEXAMETHASONE
     Indication: Inflammation
     Dosage: 4 MG
     Route: 048
     Dates: start: 20211126
  11. HYDROCORTISONE [Concomitant]
     Active Substance: HYDROCORTISONE
     Indication: Inflammation
     Dosage: 10 MG
     Route: 048
     Dates: start: 20211126
  12. LORAZEPAM [Concomitant]
     Active Substance: LORAZEPAM
     Indication: Anxiety
     Dosage: 0.5 MG
     Route: 048
     Dates: start: 20211126
  13. ENCEQUIDAR MESYLATE MONOHYDRATE [Suspect]
     Active Substance: ENCEQUIDAR MESYLATE MONOHYDRATE
  14. ENCEQUIDAR MESYLATE MONOHYDRATE [Suspect]
     Active Substance: ENCEQUIDAR MESYLATE MONOHYDRATE

REACTIONS (1)
  - Sepsis [Not Recovered/Not Resolved]

NARRATIVE: CASE EVENT DATE: 20211126
